FAERS Safety Report 11535606 (Version 3)
Quarter: 2016Q3

REPORT INFORMATION
  Report Type: Spontaneous
  Country: BR (occurrence: BR)
  Receive Date: 20150922
  Receipt Date: 20160714
  Transmission Date: 20161109
  Serious: Yes (Other)
  Sender: FDA-Public Use
  Company Number: BR-JNJFOC-20150916221

PATIENT
  Sex: Female

DRUGS (7)
  1. CALCIUM [Concomitant]
     Active Substance: CALCIUM
     Route: 065
  2. IRON [Concomitant]
     Active Substance: IRON
     Route: 065
  3. ACTONEL [Concomitant]
     Active Substance: RISEDRONATE SODIUM
     Route: 065
  4. SIMPONI [Suspect]
     Active Substance: GOLIMUMAB
     Indication: RHEUMATOID ARTHRITIS
     Route: 058
     Dates: start: 20150313
  5. ARAVA [Concomitant]
     Active Substance: LEFLUNOMIDE
     Indication: RHEUMATOID ARTHRITIS
     Route: 065
  6. OMEPRAZOLE. [Concomitant]
     Active Substance: OMEPRAZOLE
     Route: 065
  7. DEFLAZACORTE [Concomitant]
     Active Substance: DEFLAZACORT
     Route: 065

REACTIONS (7)
  - Pneumonia [Unknown]
  - Lower respiratory tract inflammation [Recovered/Resolved]
  - Furuncle [Unknown]
  - Bronchitis [Recovered/Resolved]
  - Pruritus [Unknown]
  - Needle issue [Unknown]
  - Alopecia [Unknown]

NARRATIVE: CASE EVENT DATE: 2015
